FAERS Safety Report 9939761 (Version 1)
Quarter: 2014Q1

REPORT INFORMATION
  Report Type: Spontaneous
  Country: US (occurrence: US)
  Receive Date: 20140303
  Receipt Date: 20140303
  Transmission Date: 20141002
  Serious: No
  Sender: FDA-Public Use
  Company Number: US-ABBVIE-13P-163-1037854-00

PATIENT
  Age: 58 Year
  Sex: Female

DRUGS (5)
  1. HUMIRA [Suspect]
     Indication: RHEUMATOID ARTHRITIS
  2. FLONASE [Concomitant]
     Indication: SEASONAL ALLERGY
  3. TRAMADOL [Concomitant]
     Indication: PAIN
  4. PREDNISONE [Concomitant]
     Indication: PRODUCT USED FOR UNKNOWN INDICATION
  5. CRESTOR [Concomitant]
     Indication: BLOOD CHOLESTEROL

REACTIONS (4)
  - Device malfunction [Unknown]
  - Wrong technique in drug usage process [Unknown]
  - Device malfunction [Unknown]
  - Incorrect dose administered [Unknown]
